FAERS Safety Report 19472687 (Version 1)
Quarter: 2021Q2

REPORT INFORMATION
  Report Type: Spontaneous
  Country: GB (occurrence: GB)
  Receive Date: 20210629
  Receipt Date: 20210629
  Transmission Date: 20210717
  Serious: Yes (Other)
  Sender: FDA-Public Use
  Company Number: GB-HRARD-2021000532

PATIENT
  Age: 51 Year
  Sex: Female

DRUGS (1)
  1. LYSODREN [Suspect]
     Active Substance: MITOTANE
     Route: 048
     Dates: start: 2007

REACTIONS (4)
  - Confusional state [Unknown]
  - Diarrhoea [Unknown]
  - Petit mal epilepsy [Unknown]
  - Fatigue [Unknown]
